FAERS Safety Report 4534853-3 (Version None)
Quarter: 2004Q4

REPORT INFORMATION
  Report Type: 
  Country: None (occurrence: None)
  Receive Date: 20041222
  Receipt Date: 20040510
  Transmission Date: 20050328
  Serious: No
  Sender: FDA-Public Use
  Company Number: US-BRISTOL-MYERS SQUIBB COMPANY-12583100

PATIENT
  Sex: Female

DRUGS (7)
  1. PRAVACHOL [Suspect]
     Indication: HYPERLIPIDAEMIA
     Dosage: THERAPY INITIATED AT 10 MG IN 2001, INCREASED TO 20 MG IN APRIL 2003.
     Route: 048
     Dates: start: 20010101, end: 20040509
  2. NEURONTIN [Concomitant]
  3. BACLOFEN [Concomitant]
  4. ZYPREXA [Concomitant]
  5. BETAPACE [Concomitant]
  6. LISINOPRIL [Concomitant]
  7. PLENDIL [Concomitant]

REACTIONS (1)
  - ALOPECIA [None]
